FAERS Safety Report 11201562 (Version 1)
Quarter: 2015Q2

REPORT INFORMATION
  Report Type: Spontaneous
  Country: US (occurrence: None)
  Receive Date: 20150618
  Receipt Date: 20150618
  Transmission Date: 20150821
  Serious: Yes (Other)
  Sender: FDA-Public Use
  Company Number: None

PATIENT
  Age: 43 Year
  Sex: Female

DRUGS (1)
  1. OCTREOTIDE ACET [Suspect]
     Active Substance: OCTREOTIDE\OCTREOTIDE ACETATE
     Indication: NEOPLASM MALIGNANT
     Route: 058
     Dates: start: 20150530, end: 20150610

REACTIONS (2)
  - Dyspnoea [None]
  - Abdominal pain upper [None]

NARRATIVE: CASE EVENT DATE: 20150530
